FAERS Safety Report 9687263 (Version 2)
Quarter: 2013Q4

REPORT INFORMATION
  Report Type: Spontaneous
  Country: US (occurrence: US)
  Receive Date: 20131114
  Receipt Date: 20131128
  Transmission Date: 20140711
  Serious: Yes (Other)
  Sender: FDA-Public Use
  Company Number: US-AMGEN-USASP2013078957

PATIENT
  Age: 77 Year
  Sex: Female
  Weight: 69.39 kg

DRUGS (21)
  1. PROLIA [Suspect]
     Indication: OSTEOPOROSIS POSTMENOPAUSAL
     Dosage: 60 MG, Q6MO
     Route: 058
     Dates: start: 20130820
  2. ALLOPURINOL [Concomitant]
     Dosage: 300 MG, QD
     Route: 048
     Dates: start: 20091207
  3. ASPIRIN [Concomitant]
     Dosage: 81 MG, QD
     Route: 048
     Dates: start: 20081021
  4. CALCIUM +VIT D [Concomitant]
     Dosage: 600 MG, BID
     Route: 048
  5. CARVEDILOL [Concomitant]
     Dosage: 12.5 MG, BID
     Dates: start: 20110526
  6. CLOTRIMAZOLE [Concomitant]
     Dosage: 1 %, UNK
     Route: 061
     Dates: start: 20081021
  7. BETAMETHASONE [Concomitant]
     Dosage: 0.05 %, UNK
     Route: 061
     Dates: start: 20081021
  8. LOTRISONE [Concomitant]
     Indication: RASH
     Dosage: BID PRN
     Route: 061
  9. CRANBERRY                          /01512301/ [Concomitant]
     Dosage: 300 MG, UNK
     Route: 048
  10. CYCLOBENZAPRINE HCL [Concomitant]
     Dosage: 5 MG, TID
     Route: 048
     Dates: start: 20130812
  11. DICLOFENAC SODIUM [Concomitant]
     Dosage: 75 MG, BID
     Route: 048
     Dates: start: 20130812
  12. FAMOTIDINE [Concomitant]
     Dosage: 20 MG, Q12H
     Route: 048
     Dates: start: 20081021
  13. MAGNESIUM [Concomitant]
     Dosage: 250 MG, QD
     Route: 048
  14. MULTIVITAMIN                       /00097801/ [Concomitant]
     Dosage: UNK UNK, QD
     Dates: start: 20081021
  15. NITROFURANTOIN MONOHYDRATE/MACROCRYSTALS [Concomitant]
     Dosage: 50 MG, QHS
     Route: 048
     Dates: start: 20111107
  16. SLOW FE [Concomitant]
     Dosage: UNK UNK, QD
     Route: 048
  17. SPIRONOLACTONE [Concomitant]
     Dosage: 25 MG, BID
     Route: 048
     Dates: start: 20081021
  18. TERAZOSIN HCL [Concomitant]
     Dosage: 5 MG, QD
     Route: 048
     Dates: start: 20080811
  19. TROSPIUM CHLORIDE [Concomitant]
     Dosage: 20 MG, BID
     Route: 048
     Dates: start: 20120417
  20. VALACYCLOVIR HCL [Concomitant]
     Dosage: 1 G, 2 TABLET BID
     Route: 048
     Dates: start: 20130723
  21. VITAMIN D3 [Concomitant]
     Dosage: 2000 UNIT
     Route: 048

REACTIONS (5)
  - Spinal compression fracture [Not Recovered/Not Resolved]
  - Lumbar vertebral fracture [Unknown]
  - Rib fracture [Unknown]
  - Abdominal discomfort [Unknown]
  - Cough [Unknown]
